FAERS Safety Report 15725265 (Version 2)
Quarter: 2018Q4

REPORT INFORMATION
  Report Type: Spontaneous
  Country: US (occurrence: US)
  Receive Date: 20181215
  Receipt Date: 20181217
  Transmission Date: 20190205
  Serious: Yes (Other)
  Sender: FDA-Public Use
  Company Number: US-AUROBINDO-AUR-APL-2018-056626

PATIENT
  Age: 72 Year
  Sex: Female
  Weight: 61.22 kg

DRUGS (3)
  1. SIMVASTATIN. [Concomitant]
     Active Substance: SIMVASTATIN
     Indication: PRODUCT USED FOR UNKNOWN INDICATION
  2. LOSARTAN POTASSIUM TABLETS USP 25MG [Suspect]
     Active Substance: LOSARTAN POTASSIUM
     Indication: BLOOD PRESSURE MEASUREMENT
     Dosage: 25 MILLIGRAM, TWO TIMES A DAY
     Route: 065
     Dates: start: 20181105
  3. LOSARTAN POTASSIUM TABLETS USP 25MG [Suspect]
     Active Substance: LOSARTAN POTASSIUM
     Dosage: 25 MG IN THE MORNING AND 50 MG IN THE EVENING
     Route: 065
     Dates: start: 20181113

REACTIONS (2)
  - Drug ineffective [Unknown]
  - Condition aggravated [Recovering/Resolving]

NARRATIVE: CASE EVENT DATE: 20181105
